FAERS Safety Report 25678222 (Version 1)
Quarter: 2025Q3

REPORT INFORMATION
  Report Type: Spontaneous
  Country: EU (occurrence: EU)
  Receive Date: 20250813
  Receipt Date: 20250813
  Transmission Date: 20251021
  Serious: Yes (Other)
  Sender: NOVO NORDISK
  Company Number: None

PATIENT
  Age: 81 Year
  Sex: Female

DRUGS (3)
  1. RYBELSUS [Suspect]
     Active Substance: SEMAGLUTIDE
     Indication: Diabetes mellitus
     Route: 048
     Dates: start: 20250201, end: 20250219
  2. METFORMIN HYDROCHLORIDE [Suspect]
     Active Substance: METFORMIN HYDROCHLORIDE
     Indication: Diabetes mellitus
     Route: 048
     Dates: start: 20250201, end: 20250219
  3. SITAGLIPTINA + METFORMINA [Concomitant]
     Indication: Diabetes mellitus
     Route: 048
     Dates: end: 20250201

REACTIONS (2)
  - Diabetic ketoacidosis [Recovered/Resolved]
  - Product substitution error [Recovered/Resolved]

NARRATIVE: CASE EVENT DATE: 20250201
